FAERS Safety Report 8634141 (Version 4)
Quarter: 2012Q4

REPORT INFORMATION
  Report Type: 
  Country: US (occurrence: US)
  Receive Date: 20120626
  Receipt Date: 20121015
  Transmission Date: 20130627
  Serious: Yes (Other)
  Sender: FDA-Public Use
  Company Number: US-JNJFOC-20120609817

PATIENT
  Age: 59 None
  Sex: Male
  Weight: 115.67 kg

DRUGS (5)
  1. REMICADE [Suspect]
     Indication: PSORIATIC ARTHROPATHY
     Route: 042
     Dates: start: 20120806
  2. REMICADE [Suspect]
     Indication: PSORIATIC ARTHROPATHY
     Route: 042
     Dates: start: 20070305, end: 20120615
  3. MULTIVITAMINS [Concomitant]
     Indication: NUTRITIONAL SUPPORT
     Route: 048
  4. INDAPAMIDE [Concomitant]
     Route: 065
     Dates: start: 20090914
  5. LIPITOR [Concomitant]
     Indication: BLOOD CHOLESTEROL
     Route: 065
     Dates: start: 20100402

REACTIONS (13)
  - Middle ear effusion [Recovering/Resolving]
  - Ear infection fungal [Recovering/Resolving]
  - Tympanic membrane perforation [Recovering/Resolving]
  - Hiatus hernia [Not Recovered/Not Resolved]
  - Nephrolithiasis [Not Recovered/Not Resolved]
  - Blood cholesterol increased [Not Recovered/Not Resolved]
  - Systemic lupus erythematosus [Not Recovered/Not Resolved]
  - Thrombosis [Not Recovered/Not Resolved]
  - Psoriasis [Not Recovered/Not Resolved]
  - Arthropathy [Recovered/Resolved]
  - Nasal cavity mass [Unknown]
  - Infusion related reaction [Recovered/Resolved]
  - Flushing [Recovered/Resolved]
